FAERS Safety Report 20347612 (Version 2)
Quarter: 2022Q1

REPORT INFORMATION
  Report Type: Report from Study
  Country: US (occurrence: US)
  Receive Date: 20220118
  Receipt Date: 20220303
  Transmission Date: 20220423
  Serious: Yes (Hospitalization, Other)
  Sender: FDA-Public Use
  Company Number: US-TAKEDA-US201720261

PATIENT
  Age: 49 Year
  Sex: Female

DRUGS (8)
  1. TEDUGLUTIDE [Suspect]
     Active Substance: TEDUGLUTIDE
     Indication: Short-bowel syndrome
     Dosage: 0.275 INTERNATIONAL UNIT
     Route: 065
     Dates: start: 20140410
  2. TEDUGLUTIDE [Suspect]
     Active Substance: TEDUGLUTIDE
     Indication: Short-bowel syndrome
     Dosage: 0.275 INTERNATIONAL UNIT
     Route: 065
     Dates: start: 20140410
  3. TEDUGLUTIDE [Suspect]
     Active Substance: TEDUGLUTIDE
     Indication: Short-bowel syndrome
     Dosage: 0.275 INTERNATIONAL UNIT
     Route: 065
     Dates: start: 20140410
  4. TEDUGLUTIDE [Suspect]
     Active Substance: TEDUGLUTIDE
     Indication: Short-bowel syndrome
     Dosage: 0.275 INTERNATIONAL UNIT
     Route: 065
     Dates: start: 20140410
  5. TEDUGLUTIDE [Suspect]
     Active Substance: TEDUGLUTIDE
     Dosage: 0.275 MILLILITER, QD
     Route: 058
     Dates: start: 20151217
  6. TEDUGLUTIDE [Suspect]
     Active Substance: TEDUGLUTIDE
     Dosage: 0.275 MILLILITER, QD
     Route: 058
     Dates: start: 20151217
  7. TEDUGLUTIDE [Suspect]
     Active Substance: TEDUGLUTIDE
     Dosage: 0.275 MILLILITER, QD
     Route: 058
     Dates: start: 20151217
  8. TEDUGLUTIDE [Suspect]
     Active Substance: TEDUGLUTIDE
     Dosage: 0.275 MILLILITER, QD
     Route: 058
     Dates: start: 20151217

REACTIONS (3)
  - Sepsis [Not Recovered/Not Resolved]
  - Injection site scar [Not Recovered/Not Resolved]
  - Therapy interrupted [Not Recovered/Not Resolved]

NARRATIVE: CASE EVENT DATE: 20170628
